FAERS Safety Report 25106908 (Version 1)
Quarter: 2025Q1

REPORT INFORMATION
  Report Type: Spontaneous
  Country: US (occurrence: US)
  Receive Date: 20250321
  Receipt Date: 20250321
  Transmission Date: 20250408
  Serious: No
  Sender: TEIKOKU
  Company Number: US-TPU-TPU-2025-00119

PATIENT
  Sex: Female

DRUGS (2)
  1. LIDOCAINE PATCH [Suspect]
     Active Substance: LIDOCAINE
     Indication: Scar pain
     Dates: start: 20250316
  2. LIDOCAINE PATCH [Suspect]
     Active Substance: LIDOCAINE

REACTIONS (1)
  - Therapeutic product effect decreased [Unknown]
